FAERS Safety Report 18709977 (Version 1)
Quarter: 2021Q1

REPORT INFORMATION
  Report Type: Report from Study
  Country: CA (occurrence: CA)
  Receive Date: 20210106
  Receipt Date: 20210106
  Transmission Date: 20210419
  Serious: Yes (Other)
  Sender: FDA-Public Use
  Company Number: CA-JNJFOC-20201151679

PATIENT
  Age: 26 Year
  Sex: Female
  Weight: 44.5 kg

DRUGS (2)
  1. REMICADE [Suspect]
     Active Substance: INFLIXIMAB
     Route: 042
     Dates: start: 20201005
  2. REMICADE [Suspect]
     Active Substance: INFLIXIMAB
     Indication: CROHN^S DISEASE
     Dosage: RECEIVED INFUSION AS PLANNED TODAY (29?DEC?2020).
     Route: 042
     Dates: start: 20190718

REACTIONS (8)
  - Abdominal pain [Not Recovered/Not Resolved]
  - Abdominal distension [Unknown]
  - Skin plaque [Recovering/Resolving]
  - Haematochezia [Not Recovered/Not Resolved]
  - Faeces hard [Unknown]
  - Oral candidiasis [Recovering/Resolving]
  - Fatigue [Unknown]
  - Vaginal infection [Recovering/Resolving]

NARRATIVE: CASE EVENT DATE: 20201229
